FAERS Safety Report 8368311-5 (Version None)
Quarter: 2012Q2

REPORT INFORMATION
  Report Type: 
  Country: None (occurrence: None)
  Receive Date: 20120517
  Receipt Date: 20120511
  Transmission Date: 20120825
  Serious: Yes (Hospitalization)
  Sender: FDA-Public Use
  Company Number: US-BAYER-2011-088262

PATIENT
  Age: 27 Year
  Sex: Female
  Weight: 88.435 kg

DRUGS (8)
  1. YAZ [Suspect]
     Dosage: UNK
     Route: 048
     Dates: start: 20020101, end: 20090101
  2. DROSPIRENONE AND ETHINYL ESTRADIOL [Suspect]
     Dosage: UNK
     Route: 048
     Dates: start: 20020101, end: 20090101
  3. IBUPROFEN [Concomitant]
     Dosage: UNK
     Route: 048
     Dates: start: 20090909
  4. BISMUTH SUBSALICYLATE [Concomitant]
     Dosage: UNK
     Route: 048
     Dates: start: 20090904
  5. PEPCID [Concomitant]
     Dosage: UNK
     Route: 048
     Dates: start: 20090904
  6. EFFEXOR [Concomitant]
     Dosage: 37.5 MG, UNK
     Route: 048
     Dates: start: 20090904
  7. YASMIN [Suspect]
     Dosage: UNK
     Route: 048
     Dates: start: 20020101, end: 20090101
  8. PRILOSEC [Concomitant]
     Dosage: 40 MG, UNK
     Route: 048
     Dates: start: 20090904

REACTIONS (8)
  - GALLBLADDER DISORDER [None]
  - MALAISE [None]
  - CHOLECYSTITIS CHRONIC [None]
  - PYREXIA [None]
  - INJURY [None]
  - VOMITING [None]
  - BILIARY DYSKINESIA [None]
  - ABDOMINAL PAIN UPPER [None]
